FAERS Safety Report 12900740 (Version 3)
Quarter: 2018Q4

REPORT INFORMATION
  Report Type: Report from Study
  Country: US (occurrence: US)
  Receive Date: 20161101
  Receipt Date: 20181206
  Transmission Date: 20190204
  Serious: Yes (Other)
  Sender: FDA-Public Use
  Company Number: US-INCYTE CORPORATION-2016IN006794

PATIENT

DRUGS (13)
  1. ALLOPURINOL. [Concomitant]
     Active Substance: ALLOPURINOL
     Indication: BLOOD URIC ACID INCREASED
     Dosage: 100 MG, BID
     Route: 065
     Dates: start: 20110505
  2. JAKAFI [Suspect]
     Active Substance: RUXOLITINIB
     Indication: POLYCYTHAEMIA VERA
     Dosage: 20 MG, BID
     Route: 048
     Dates: start: 20120216, end: 201611
  3. CYPROHEPTADINE. [Concomitant]
     Active Substance: CYPROHEPTADINE
     Indication: PRURITUS
     Dosage: 4 MG, BID
     Route: 065
     Dates: start: 20170117
  4. HYDROXYZINE [Concomitant]
     Active Substance: HYDROXYZINE HYDROCHLORIDE
     Indication: PRURITUS
     Dosage: 50 MG, QD
     Route: 065
     Dates: start: 201611
  5. TRETINOIN. [Concomitant]
     Active Substance: TRETINOIN
     Indication: SKIN CANCER
     Dosage: 1 APPLICATION, QD
     Route: 065
     Dates: start: 20141106, end: 20161208
  6. LEVOTHYROXIN [Concomitant]
     Active Substance: LEVOTHYROXINE
     Indication: HYPOTHYROIDISM
     Dosage: 100 ?G, QD
     Route: 065
     Dates: start: 20170321
  7. AMBIEN [Concomitant]
     Active Substance: ZOLPIDEM TARTRATE
     Indication: INSOMNIA
     Dosage: 10 MG, QD
     Route: 065
     Dates: start: 20090512
  8. LUMIGAN [Concomitant]
     Active Substance: BIMATOPROST
     Indication: GLAUCOMA
     Dosage: 2 DROPS, QD
     Route: 065
     Dates: start: 20150915, end: 20161208
  9. OLANZAPINE. [Concomitant]
     Active Substance: OLANZAPINE
     Dosage: 5 MG, QD
     Route: 065
     Dates: start: 20180205, end: 20180809
  10. ASPIRIN                            /00002701/ [Concomitant]
     Active Substance: ASPIRIN
     Indication: THROMBOSIS PROPHYLAXIS
     Dosage: 81 MG, QD
     Route: 065
     Dates: start: 20160205, end: 20160609
  11. CARDIZEM [Concomitant]
     Active Substance: DILTIAZEM HYDROCHLORIDE
     Indication: ATRIAL FIBRILLATION
     Dosage: 120 MG, QD
     Route: 065
     Dates: start: 20180226
  12. OLANZAPINE. [Concomitant]
     Active Substance: OLANZAPINE
     Indication: DEPRESSION
     Dosage: 5 MG, QD
     Route: 065
     Dates: start: 20180205
  13. SIMVASTATIN. [Concomitant]
     Active Substance: SIMVASTATIN
     Indication: HYPERLIPIDAEMIA
     Dosage: 20 MG, QD
     Route: 065
     Dates: start: 20100812

REACTIONS (2)
  - Sjogren^s syndrome [Not Recovered/Not Resolved]
  - Neuroendocrine carcinoma of the skin [Not Recovered/Not Resolved]

NARRATIVE: CASE EVENT DATE: 20161004
